FAERS Safety Report 5326848-7 (Version None)
Quarter: 2007Q2

REPORT INFORMATION
  Report Type: 
  Country: None (occurrence: None)
  Receive Date: 20070507
  Receipt Date: 20070424
  Transmission Date: 20071010
  Serious: Yes (Other)
  Sender: FDA-Public Use
  Company Number: B0468942A

PATIENT
  Age: 39 Year
  Sex: Female

DRUGS (2)
  1. NARATRIPTAN HYDROCHLORIDE (FORMULATION UNKNOWN) (GENERIC) (NARATRIPTAN [Suspect]
     Indication: MIGRAINE
  2. ANALGESIC (FORMULATION UNKNOWN) (ANALGESIC) [Suspect]

REACTIONS (4)
  - BIPOLAR II DISORDER [None]
  - FEAR OF DISEASE [None]
  - GENERALISED ANXIETY DISORDER [None]
  - INTENTIONAL DRUG MISUSE [None]
